FAERS Safety Report 10050803 (Version 1)
Quarter: 2014Q2

REPORT INFORMATION
  Report Type: Spontaneous
  Country: US (occurrence: US)
  Receive Date: 20140401
  Receipt Date: 20140401
  Transmission Date: 20141212
  Serious: No
  Sender: FDA-Public Use
  Company Number: US-ASTRAZENECA-2013SE68166

PATIENT
  Age: 57 Year
  Sex: Male

DRUGS (3)
  1. NEXIUM [Suspect]
     Indication: GASTROOESOPHAGEAL REFLUX DISEASE
     Route: 048
     Dates: start: 201306, end: 2013
  2. NEXIUM [Suspect]
     Indication: GASTROOESOPHAGEAL REFLUX DISEASE
     Dosage: EVERY OTHER DAY
     Route: 048
  3. NEXIUM [Suspect]
     Indication: GASTROOESOPHAGEAL REFLUX DISEASE
     Dosage: EVERYDAY
     Route: 048

REACTIONS (3)
  - Gastrooesophageal reflux disease [Unknown]
  - Drug dose omission [Unknown]
  - Off label use [Unknown]
